FAERS Safety Report 4441620-8 (Version None)
Quarter: 2004Q3

REPORT INFORMATION
  Report Type: 
  Country: None (occurrence: None)
  Receive Date: 20040907
  Receipt Date: 20040901
  Transmission Date: 20050211
  Serious: Yes (Hospitalization)
  Sender: FDA-Public Use
  Company Number: RU-BRISTOL-MYERS SQUIBB COMPANY-12688495

PATIENT
  Age: 54 Year
  Sex: Male

DRUGS (16)
  1. CYCLOPHOSPHAMIDE [Suspect]
     Indication: CHRONIC LYMPHOCYTIC LEUKAEMIA
     Dosage: DAYS 5, 6 AND 7 Q 28 DAYS
     Route: 042
     Dates: start: 20030626, end: 20030626
  2. FLUDARABINE PHOSPHATE [Suspect]
     Indication: CHRONIC LYMPHOCYTIC LEUKAEMIA
     Dosage: DAYS 5, 6 + 7 Q 28 DAYS
     Route: 042
     Dates: start: 20030626, end: 20030626
  3. GENASENSE [Suspect]
     Indication: CHRONIC LYMPHOCYTIC LEUKAEMIA
     Dosage: DAYS 1-7 Q 28 DAYS
     Route: 042
     Dates: start: 20030626, end: 20030626
  4. AMLODIPINE BESYLATE [Concomitant]
  5. VANCOMYCIN [Concomitant]
  6. CIPROFLOXACIN HCL [Concomitant]
  7. ITRACONAZOLE [Concomitant]
  8. FLUCONAZOLE [Concomitant]
  9. KETOCONAZOLE [Concomitant]
  10. EPOETIN ALFA [Concomitant]
  11. SULFAMETHOXAZOLE + TRIMETHOPRIM [Concomitant]
  12. NYSTATIN [Concomitant]
  13. ACYCLOVIR [Concomitant]
  14. ALLOPURINOL [Concomitant]
  15. ONDANSETRON [Concomitant]
     Indication: PREMEDICATION
  16. FILGRASTIM [Concomitant]

REACTIONS (1)
  - PYREXIA [None]
